FAERS Safety Report 7052150-1 (Version None)
Quarter: 2010Q4

REPORT INFORMATION
  Report Type: 
  Country: None (occurrence: None)
  Receive Date: 20101019
  Receipt Date: 20101012
  Transmission Date: 20110411
  Serious: Yes (Other)
  Sender: FDA-Public Use
  Company Number: US-US-EMD SERONO, INC.-7021855

PATIENT
  Sex: Male

DRUGS (1)
  1. REBIF [Suspect]
     Indication: MULTIPLE SCLEROSIS
     Route: 058
     Dates: start: 20091209

REACTIONS (4)
  - HYPOAESTHESIA [None]
  - INFLUENZA LIKE ILLNESS [None]
  - PAIN [None]
  - PARKINSON'S DISEASE [None]
